FAERS Safety Report 11228982 (Version 2)
Quarter: 2015Q3

REPORT INFORMATION
  Report Type: Spontaneous
  Country: AU (occurrence: AU)
  Receive Date: 20150630
  Receipt Date: 20150707
  Transmission Date: 20151125
  Serious: Yes (Other)
  Sender: FDA-Public Use
  Company Number: AU-APOTEX-2015AP010271

PATIENT

DRUGS (3)
  1. APO-SILDENAFIL PAH [Suspect]
     Active Substance: SILDENAFIL
     Indication: PERSISTENT FOETAL CIRCULATION
     Dosage: 0.5 MG/KG/DOSE 6 HOURLY
     Route: 048
  2. NITRIC OXIDE. [Concomitant]
     Active Substance: NITRIC OXIDE
     Indication: PERSISTENT FOETAL CIRCULATION
     Dosage: 10 PPM STARTED AT 72 HOURS OF LIFE
     Route: 055
  3. APO-SILDENAFIL PAH [Suspect]
     Active Substance: SILDENAFIL
     Indication: PATENT DUCTUS ARTERIOSUS

REACTIONS (2)
  - Prerenal failure [Recovered/Resolved]
  - Hypotension [Recovered/Resolved]
